FAERS Safety Report 17973757 (Version 1)
Quarter: 2020Q3

REPORT INFORMATION
  Report Type: Spontaneous
  Country: FR (occurrence: FR)
  Receive Date: 20200702
  Receipt Date: 20200702
  Transmission Date: 20201103
  Serious: Yes (Other)
  Sender: FDA-Public Use
  Company Number: FR-ASTRAZENECA-2020SE82047

PATIENT
  Age: 73 Year
  Sex: Female
  Weight: 65 kg

DRUGS (3)
  1. DURVALUMAB. [Suspect]
     Active Substance: DURVALUMAB
     Indication: NON-SMALL CELL LUNG CANCER STAGE III
     Route: 042
     Dates: start: 2019, end: 202005
  2. CARBOPLATIN. [Concomitant]
     Active Substance: CARBOPLATIN
  3. TAXOL [Concomitant]
     Active Substance: PACLITAXEL

REACTIONS (7)
  - Arthralgia [Unknown]
  - Metastases to bone [Unknown]
  - Pelvic pain [Unknown]
  - Metastases to pelvis [Unknown]
  - Lymphadenopathy [Unknown]
  - Malignant neoplasm progression [Unknown]
  - Metastases to spine [Unknown]

NARRATIVE: CASE EVENT DATE: 202005
